FAERS Safety Report 20646146 (Version 2)
Quarter: 2022Q2

REPORT INFORMATION
  Report Type: Spontaneous
  Country: RO (occurrence: RO)
  Receive Date: 20220329
  Receipt Date: 20220419
  Transmission Date: 20220720
  Serious: Yes (Other)
  Sender: FDA-Public Use
  Company Number: RO-BAYER-2022A041860

PATIENT
  Age: 80 Year
  Sex: Male

DRUGS (2)
  1. EYLEA [Suspect]
     Active Substance: AFLIBERCEPT
     Indication: Age-related macular degeneration
     Dosage: UNK (TOTAL OF 3 INJECTIONS)
     Dates: start: 20211221, end: 20220215
  2. EYLEA [Suspect]
     Active Substance: AFLIBERCEPT
     Dosage: 1 DF, ONCE (LAST INJECTION)
     Dates: start: 20220215, end: 20220215

REACTIONS (3)
  - Detached Descemet^s membrane [Not Recovered/Not Resolved]
  - Corneal oedema [Not Recovered/Not Resolved]
  - Corneal epithelium defect [Not Recovered/Not Resolved]

NARRATIVE: CASE EVENT DATE: 20220215
